FAERS Safety Report 24133585 (Version 1)
Quarter: 2024Q3

REPORT INFORMATION
  Report Type: Spontaneous
  Country: US (occurrence: None)
  Receive Date: 20240724
  Receipt Date: 20240724
  Transmission Date: 20241017
  Serious: Yes (Death, Hospitalization)
  Sender: Public
  Company Number: None

PATIENT
  Age: 88 Year
  Sex: Female
  Weight: 51.75 kg

DRUGS (11)
  1. EYLEA [Suspect]
     Active Substance: AFLIBERCEPT
     Indication: Macular oedema
     Dosage: OTHER FREQUENCY : EVERY FEW WEEKS;?
     Route: 047
     Dates: start: 20210726, end: 20240606
  2. COUMADIN [Suspect]
     Active Substance: WARFARIN SODIUM
  3. METOPROLOL [Concomitant]
  4. FAMOTIDINE [Concomitant]
     Active Substance: FAMOTIDINE
  5. mitazapine [Concomitant]
  6. XANAX [Concomitant]
     Active Substance: ALPRAZOLAM
  7. dicyclomine [Concomitant]
  8. VITAMINS [Concomitant]
     Active Substance: VITAMINS
  9. VITAMIN C [Concomitant]
     Active Substance: ASCORBIC ACID
  10. VITAMIN D [Concomitant]
     Active Substance: VITAMIN D NOS
  11. PROBIOTICS NOS [Concomitant]
     Active Substance: PROBIOTICS NOS

REACTIONS (5)
  - Ischaemic stroke [None]
  - Brain oedema [None]
  - Cerebral haemorrhage [None]
  - Hospice care [None]
  - International normalised ratio increased [None]

NARRATIVE: CASE EVENT DATE: 20240609
